FAERS Safety Report 9587838 (Version 2)
Quarter: 2013Q4

REPORT INFORMATION
  Report Type: Spontaneous
  Country: US (occurrence: US)
  Receive Date: 20131003
  Receipt Date: 20131009
  Transmission Date: 20140711
  Serious: Yes (Other)
  Sender: FDA-Public Use
  Company Number: CHPA2013US015052

PATIENT
  Age: 43 Year
  Sex: Male

DRUGS (3)
  1. BUCKLEY^S COUGH MIXTURE [Suspect]
     Indication: ASTHMA
     Dosage: 1 TSP, QD PRN
     Route: 048
  2. BUCKLEY^S COUGH MIXTURE [Suspect]
     Indication: OFF LABEL USE
  3. SIMVASTATIN [Concomitant]
     Indication: BLOOD CHOLESTEROL INCREASED
     Dosage: UNK, UNK

REACTIONS (2)
  - Asthma [Not Recovered/Not Resolved]
  - Therapeutic response unexpected [Unknown]
